FAERS Safety Report 9476631 (Version 1)
Quarter: 2013Q3

REPORT INFORMATION
  Report Type: Spontaneous
  Country: IT (occurrence: IT)
  Receive Date: 20130826
  Receipt Date: 20130826
  Transmission Date: 20140515
  Serious: Yes (Hospitalization)
  Sender: FDA-Public Use
  Company Number: PHHY2013IT090333

PATIENT
  Sex: Male

DRUGS (4)
  1. BISOPROLOL [Suspect]
     Dosage: 1 DF, UNK
     Route: 048
     Dates: start: 20130601, end: 20130601
  2. NORVASC [Concomitant]
  3. LORAZEPAM [Concomitant]
  4. ALLOPURINOL [Concomitant]

REACTIONS (2)
  - Injury [Recovering/Resolving]
  - Syncope [Recovering/Resolving]
